FAERS Safety Report 4869443-6 (Version None)
Quarter: 2005Q4

REPORT INFORMATION
  Report Type: 
  Country: None (occurrence: None)
  Receive Date: 20051230
  Receipt Date: 20050919
  Transmission Date: 20060501
  Serious: Yes (Death)
  Sender: FDA-Public Use
  Company Number: US-MERCK-0509USA03002

PATIENT
  Age: 79 Year
  Sex: Male
  Weight: 86 kg

DRUGS (2)
  1. VIOXX [Suspect]
     Route: 048
     Dates: start: 20000101, end: 20030903
  2. VIOXX [Suspect]
     Route: 048
     Dates: start: 20000101, end: 20030903

REACTIONS (1)
  - MYOCARDIAL INFARCTION [None]
